FAERS Safety Report 18599812 (Version 4)
Quarter: 2021Q4

REPORT INFORMATION
  Report Type: Spontaneous
  Country: US (occurrence: US)
  Receive Date: 20201210
  Receipt Date: 20211116
  Transmission Date: 20220303
  Serious: No
  Sender: FDA-Public Use
  Company Number: US-PFIZER INC-2020483575

PATIENT
  Age: 76 Year
  Sex: Female
  Weight: 104.33 kg

DRUGS (3)
  1. CELECOXIB [Suspect]
     Active Substance: CELECOXIB
     Indication: Arthropathy
     Dosage: 200 MG, 1X/DAY
  2. CELECOXIB [Suspect]
     Active Substance: CELECOXIB
     Indication: Muscle disorder
     Dosage: 200 MG, 1X/DAY
     Dates: start: 2020
  3. CELECOXIB [Suspect]
     Active Substance: CELECOXIB
     Indication: Arthritis

REACTIONS (1)
  - Drug ineffective [Unknown]
